FAERS Safety Report 10410460 (Version 2)
Quarter: 2014Q4

REPORT INFORMATION
  Report Type: Spontaneous
  Country: US (occurrence: US)
  Receive Date: 20140826
  Receipt Date: 20141016
  Transmission Date: 20150528
  Serious: Yes (Hospitalization, Other)
  Sender: FDA-Public Use
  Company Number: US-GLAXOSMITHKLINE-A1086397A

PATIENT
  Age: 73 Year
  Sex: Female
  Weight: 77.98 kg

DRUGS (10)
  1. MELPHALAN [Suspect]
     Active Substance: MELPHALAN
     Indication: BONE MARROW TRANSPLANT
     Dosage: TIMES 2
     Route: 042
     Dates: start: 20130930, end: 20131001
  2. PROCHLORPERAZINE. [Concomitant]
     Active Substance: PROCHLORPERAZINE
  3. BACTRIM SS [Concomitant]
  4. ACYCLOVIR. [Concomitant]
     Active Substance: ACYCLOVIR
  5. LEVAQUIN [Concomitant]
     Active Substance: LEVOFLOXACIN
  6. FAMOTIDINE. [Concomitant]
     Active Substance: FAMOTIDINE
  7. CYTOXAN [Suspect]
     Active Substance: CYCLOPHOSPHAMIDE
     Indication: HAEMATOPOIETIC STEM CELL MOBILISATION
     Route: 042
     Dates: start: 20130913, end: 20130913
  8. ATIVAN [Concomitant]
     Active Substance: LORAZEPAM
  9. LISINOPRIL. [Concomitant]
     Active Substance: LISINOPRIL
  10. PENICILLIN VK [Concomitant]
     Active Substance: PENICILLIN V POTASSIUM

REACTIONS (4)
  - Pyrexia [Recovered/Resolved]
  - Engraftment syndrome [Recovered/Resolved]
  - Chills [Recovered/Resolved]
  - Systemic inflammatory response syndrome [Recovered/Resolved]

NARRATIVE: CASE EVENT DATE: 20131025
